FAERS Safety Report 17893248 (Version 3)
Quarter: 2020Q3

REPORT INFORMATION
  Report Type: Report from Study
  Country: None (occurrence: US)
  Receive Date: 20200614
  Receipt Date: 20200803
  Transmission Date: 20201103
  Serious: Yes (Hospitalization, Other)
  Sender: FDA-Public Use
  Company Number: US-ABBVIE-20K-163-3442288-00

PATIENT
  Age: 65 Year
  Sex: Male
  Weight: 45.4 kg

DRUGS (2)
  1. HUMIRA [Suspect]
     Active Substance: ADALIMUMAB
     Indication: CROHN^S DISEASE
     Route: 058
     Dates: start: 20200506, end: 20200506
  2. ASPIRIN (E.C.) [Concomitant]
     Active Substance: ASPIRIN
     Indication: THROMBOSIS PROPHYLAXIS

REACTIONS (22)
  - Hypophagia [Not Recovered/Not Resolved]
  - Arterial haemorrhage [Recovered/Resolved]
  - Vitamin D decreased [Unknown]
  - Intestinal perforation [Recovered/Resolved]
  - Medical induction of coma [Recovered/Resolved]
  - Weight decreased [Not Recovered/Not Resolved]
  - Intestinal obstruction [Recovered/Resolved]
  - Limb operation [Recovering/Resolving]
  - Blood potassium increased [Unknown]
  - Thrombosis [Recovered/Resolved]
  - Arteritis infective [Recovered/Resolved]
  - Abdominal infection [Recovered/Resolved]
  - Vitamin A decreased [Unknown]
  - Arterial injury [Recovered/Resolved]
  - Impaired healing [Not Recovered/Not Resolved]
  - Loss of consciousness [Recovered/Resolved]
  - Parenteral nutrition [Not Recovered/Not Resolved]
  - Blood sodium decreased [Unknown]
  - Limb injury [Recovering/Resolving]
  - Near death experience [Recovering/Resolving]
  - Fasciotomy [Recovering/Resolving]
  - Pain [Not Recovered/Not Resolved]

NARRATIVE: CASE EVENT DATE: 2020
